FAERS Safety Report 5909448-7 (Version None)
Quarter: 2008Q4

REPORT INFORMATION
  Report Type: 
  Country: None (occurrence: None)
  Receive Date: 20081006
  Receipt Date: 20080923
  Transmission Date: 20090506
  Serious: Yes (Hospitalization)
  Sender: FDA-Public Use
  Company Number: CA-GENENTECH-266008

PATIENT
  Sex: Female

DRUGS (7)
  1. BEVACIZUMAB [Suspect]
     Indication: BREAST CANCER
     Dosage: 990 MG, Q3W
     Route: 042
     Dates: start: 20080717
  2. TRASTUZUMAB [Suspect]
     Indication: BREAST CANCER
     Dosage: 528 MG, Q3W
     Route: 042
     Dates: start: 20080716
  3. DOCETAXEL [Suspect]
     Indication: BREAST CANCER
     Dosage: 163 MG, Q3W
     Route: 042
     Dates: start: 20080717
  4. TENORMIN [Concomitant]
     Indication: DRUG USE FOR UNKNOWN INDICATION
     Dosage: UNK
     Dates: start: 19700101
  5. REACTINE [Concomitant]
     Indication: DRUG USE FOR UNKNOWN INDICATION
     Dosage: UNK
     Dates: start: 19990101
  6. NOVO-TRIAMZIDE [Concomitant]
     Indication: DRUG USE FOR UNKNOWN INDICATION
     Dosage: UNK
     Dates: start: 19990101
  7. FLONASE [Concomitant]
     Indication: DRUG USE FOR UNKNOWN INDICATION
     Dosage: UNK
     Dates: start: 19990101

REACTIONS (1)
  - ENTERITIS [None]
